FAERS Safety Report 6610160-X (Version None)
Quarter: 2010Q1

REPORT INFORMATION
  Report Type: 
  Country: None (occurrence: None)
  Receive Date: 20100302
  Receipt Date: 20100218
  Transmission Date: 20100710
  Serious: Yes (Hospitalization)
  Sender: FDA-Public Use
  Company Number: NL-PFIZER INC-2010021735

PATIENT
  Age: 28 Year
  Sex: Male

DRUGS (1)
  1. CLINDAMYCIN HCL [Suspect]
     Indication: ALLERGY TEST
     Dosage: 300 MG, 2X/DAY
     Route: 048
     Dates: start: 20091001

REACTIONS (3)
  - ERYTHEMA [None]
  - FATIGUE [None]
  - HEADACHE [None]
